FAERS Safety Report 5798539-X (Version None)
Quarter: 2008Q3

REPORT INFORMATION
  Report Type: 
  Country: None (occurrence: None)
  Receive Date: 20080701
  Receipt Date: 20080701
  Transmission Date: 20090109
  Serious: Yes (Hospitalization)
  Sender: FDA-Public Use
  Company Number: None

PATIENT
  Age: 66 Year
  Sex: Male
  Weight: 81 kg

DRUGS (2)
  1. CYCLOBENZAPRINE HCL [Suspect]
     Dosage: 10 MG AT BEDTIME PO
     Route: 048
     Dates: start: 20080505, end: 20080507
  2. TRAMADOL HCL [Suspect]
     Dosage: 75 MG QID PO
     Route: 048
     Dates: start: 20080401, end: 20080505

REACTIONS (2)
  - HUMERUS FRACTURE [None]
  - SYNCOPE [None]
